FAERS Safety Report 8934641 (Version 1)
Quarter: 2012Q4

REPORT INFORMATION
  Report Type: 
  Country: US (occurrence: US)
  Receive Date: 20121129
  Receipt Date: 20121129
  Transmission Date: 20130627
  Serious: Yes (Disabling, Other)
  Sender: FDA-Public Use
  Company Number: US-PAR PHARMACEUTICAL, INC-2012SCPR004740

PATIENT
  Sex: Male

DRUGS (4)
  1. METOCLOPRAMIDE [Suspect]
     Indication: NAUSEA
     Dosage: UNK, Unknown
     Route: 065
     Dates: start: 200706, end: 200710
  2. METOCLOPRAMIDE [Suspect]
     Indication: ABDOMINAL PAIN
  3. METOCLOPRAMIDE [Suspect]
     Indication: ABDOMINAL DISTENSION
  4. METOCLOPRAMIDE [Suspect]
     Indication: DYSPEPSIA

REACTIONS (10)
  - Incorrect drug administration duration [Unknown]
  - Injury [Unknown]
  - Nervous system disorder [Unknown]
  - Extrapyramidal disorder [Unknown]
  - Tardive dyskinesia [Unknown]
  - Pain [Unknown]
  - Emotional distress [Unknown]
  - Ill-defined disorder [Unknown]
  - Economic problem [Unknown]
  - Loss of employment [Unknown]
